FAERS Safety Report 8134929-8 (Version None)
Quarter: 2012Q1

REPORT INFORMATION
  Report Type: 
  Country: None (occurrence: None)
  Receive Date: 20120214
  Receipt Date: 20120203
  Transmission Date: 20120608
  Serious: Yes (Death, Hospitalization)
  Sender: FDA-Public Use
  Company Number: DK-SANOFI-AVENTIS-2011SA084817

PATIENT
  Age: 66 Year
  Sex: Female
  Weight: 60 kg

DRUGS (21)
  1. LORAZEPAM [Concomitant]
     Dosage: .5 MICROMOLE
     Route: 048
     Dates: start: 20110531
  2. DEXAMETHASONE [Concomitant]
     Dosage: 40 MILLIGRAM
     Route: 048
     Dates: start: 20111121, end: 20111122
  3. PREDNISOLONE [Concomitant]
     Dosage: 100 MILLIGRAM
     Route: 048
     Dates: start: 20111109, end: 20111114
  4. ALL OTHER THERAPEUTIC PRODUCTS [Concomitant]
     Dosage: 1 DOSAGE FORMS
     Route: 048
     Dates: start: 20110322, end: 20111224
  5. MAGNESIUM [Concomitant]
     Dosage: 1000 MILLIGRAM
     Route: 048
     Dates: start: 20110403, end: 20111129
  6. MAGNYL /OLD FORM/ ^DAK^ [Concomitant]
     Route: 048
     Dates: start: 20111031, end: 20111224
  7. LENALIDOMIDE [Suspect]
     Indication: MULTIPLE MYELOMA
     Dosage: 25 MILLIGRAM
     Route: 048
     Dates: start: 20111031, end: 20111121
  8. ACYCLOVIR [Concomitant]
     Dosage: 800 MILLIGRAM
     Route: 048
     Dates: start: 20111210, end: 20111212
  9. ACYCLOVIR [Concomitant]
     Dosage: 800 MILLIGRAM
     Route: 048
     Dates: start: 20111213, end: 20111222
  10. METHADONE HCL [Concomitant]
     Route: 048
     Dates: start: 20110331
  11. PANTOPRAZOLE [Concomitant]
     Dosage: 40 MILLIGRAM
     Route: 048
     Dates: start: 20111109, end: 20111224
  12. ACETYLSALICYLIC ACID SRT [Concomitant]
     Route: 048
     Dates: start: 20110331
  13. ACYCLOVIR [Concomitant]
     Dosage: 800 MILLIGRAM
     Route: 048
     Dates: start: 20110524
  14. ZOPICLONE [Concomitant]
     Dosage: 3.75 MILLIGRAM
     Route: 048
     Dates: start: 20110614
  15. DEXAMETHASONE [Concomitant]
     Dosage: 40 MILLIGRAM
     Route: 048
     Dates: start: 20111031, end: 20111101
  16. DEXAMETHASONE [Concomitant]
     Dosage: 40 MILLIGRAM
     Route: 048
     Dates: start: 20111107, end: 20111108
  17. PREDNISOLONE [Concomitant]
     Dosage: 100 MILLIGRAM
     Route: 048
     Dates: start: 20111205
  18. SODIUM POLYSTYRENE SULFONATE [Suspect]
     Dosage: 30 GRAM
     Route: 048
     Dates: start: 20111122, end: 20111126
  19. LENALIDOMIDE [Suspect]
     Route: 048
     Dates: start: 20111211, end: 20111212
  20. BETOLVEX [Concomitant]
     Dosage: 1 MILLIGRAM
     Route: 048
     Dates: start: 20100104, end: 20111224
  21. BIOCLAVID /DEN/ [Concomitant]
     Dates: start: 20111003, end: 20111010

REACTIONS (8)
  - BLOOD CREATININE INCREASED [None]
  - PNEUMONIA [None]
  - HYPERCALCAEMIA [None]
  - GENERAL SYMPTOM [None]
  - CONFUSIONAL STATE [None]
  - HYPOKALAEMIA [None]
  - DEATH [None]
  - PAIN [None]
